FAERS Safety Report 9753654 (Version 1)
Quarter: 2013Q4

REPORT INFORMATION
  Report Type: Spontaneous
  Country: MX (occurrence: None)
  Receive Date: 20131211
  Receipt Date: 20131211
  Transmission Date: 20140711
  Serious: Yes (Other)
  Sender: FDA-Public Use
  Company Number: VAL_02859_2013

PATIENT
  Age: 18 Year
  Sex: Female

DRUGS (4)
  1. METOPROLOL [Suspect]
     Indication: HYPERTENSION
     Dosage: DF
  2. TELMISARTAN [Suspect]
     Indication: HYPERTENSION
     Dosage: DF
  3. PRAZOSIN [Suspect]
     Indication: HYPERTENSION
     Dosage: DF?
  4. NIFEDIPINE [Suspect]
     Indication: HYPERTENSION
     Dosage: DF?

REACTIONS (8)
  - Hypertensive crisis [None]
  - Hemiplegia [None]
  - Chest pain [None]
  - Blood testosterone increased [None]
  - Drug ineffective [None]
  - Product quality issue [None]
  - Blood androstenedione increased [None]
  - Dehydroepiandrosterone decreased [None]
